FAERS Safety Report 4976219-8 (Version None)
Quarter: 2006Q2

REPORT INFORMATION
  Report Type: 
  Country: None (occurrence: None)
  Receive Date: 20060419
  Receipt Date: 20060406
  Transmission Date: 20061013
  Serious: Yes (Other)
  Sender: FDA-Public Use
  Company Number: PHBS2006US05376

PATIENT
  Age: 74 Year
  Sex: Male

DRUGS (23)
  1. LEUKINE [Concomitant]
  2. ESTRADIOL [Concomitant]
     Route: 062
  3. ROSIGLITAZONE MALEATE [Concomitant]
  4. CELECOXIB [Concomitant]
  5. ISOTRETINOIN [Concomitant]
  6. DUTASTERIDE [Concomitant]
  7. LEUPROLIDE ACETATE [Concomitant]
  8. DOXYCYCLINE HYCLATE [Concomitant]
  9. ATORVASTATIN CALCIUM [Concomitant]
  10. EPOGEN [Concomitant]
  11. ESOMEPRAZOLE MAGNESIUM [Concomitant]
  12. PEGASYS [Concomitant]
  13. ASPIRIN [Concomitant]
  14. CALCIUM GLUCONATE [Concomitant]
  15. COENZYME A [Concomitant]
  16. FOLIC ACID [Concomitant]
  17. GREEN TEA EXTRACT [Concomitant]
  18. VITAMIN E [Concomitant]
  19. LYCOPENE [Concomitant]
  20. MAGNESIUM [Concomitant]
  21. MAITAKE MUSHROOM EXTRACT [Concomitant]
  22. MEGA SOY EXTRACT [Concomitant]
  23. ZOLEDRONATE [Suspect]

REACTIONS (5)
  - OSTEOMYELITIS [None]
  - OSTEONECROSIS [None]
  - TOOTH EXTRACTION [None]
  - TOOTH LOSS [None]
  - TOOTHACHE [None]
